FAERS Safety Report 20005098 (Version 1)
Quarter: 2021Q4

REPORT INFORMATION
  Report Type: Spontaneous
  Country: US (occurrence: US)
  Receive Date: 20211027
  Receipt Date: 20211027
  Transmission Date: 20220303
  Serious: Yes (Hospitalization)
  Sender: FDA-Public Use
  Company Number: None

PATIENT
  Sex: Female

DRUGS (2)
  1. GRANIX [Suspect]
     Active Substance: TBO-FILGRASTIM
     Indication: Cyclic neutropenia
     Route: 058
     Dates: start: 20210803
  2. GRANIX [Suspect]
     Active Substance: TBO-FILGRASTIM

REACTIONS (2)
  - White blood cell count decreased [None]
  - Therapy interrupted [None]
